FAERS Safety Report 12223508 (Version 3)
Quarter: 2016Q2

REPORT INFORMATION
  Report Type: Spontaneous
  Country: US (occurrence: US)
  Receive Date: 20160330
  Receipt Date: 20160518
  Transmission Date: 20160815
  Serious: Yes (Hospitalization, Other)
  Sender: FDA-Public Use
  Company Number: US-JNJFOC-20160322829

PATIENT
  Age: 60 Year
  Sex: Female

DRUGS (9)
  1. REMICADE [Suspect]
     Active Substance: INFLIXIMAB
     Indication: RHEUMATOID ARTHRITIS
     Dosage: ONCE EVERY 0, 2, 4 AND THEN 8 WEEKS
     Route: 042
     Dates: start: 20160113
  2. OTREXUP [Concomitant]
     Active Substance: METHOTREXATE
     Route: 065
     Dates: start: 20160414
  3. PREDNISONE. [Concomitant]
     Active Substance: PREDNISONE
     Route: 065
  4. TYLENOL [Concomitant]
     Active Substance: ACETAMINOPHEN
     Route: 048
  5. LORATADINE. [Concomitant]
     Active Substance: LORATADINE
     Route: 048
  6. REMICADE [Suspect]
     Active Substance: INFLIXIMAB
     Indication: RHEUMATOID ARTHRITIS
     Route: 042
     Dates: start: 20160225
  7. REMICADE [Suspect]
     Active Substance: INFLIXIMAB
     Indication: RHEUMATOID ARTHRITIS
     Route: 042
     Dates: start: 20160303
  8. METHOTREXATE [Concomitant]
     Active Substance: METHOTREXATE
     Indication: RHEUMATOID ARTHRITIS
     Route: 065
     Dates: start: 20150801
  9. REMICADE [Suspect]
     Active Substance: INFLIXIMAB
     Indication: RHEUMATOID ARTHRITIS
     Dosage: ONCE EVERY 2, 4 AND THEN 8 WEEKS
     Route: 042
     Dates: start: 20160127

REACTIONS (6)
  - Fatigue [Recovering/Resolving]
  - Somnolence [Recovering/Resolving]
  - Stomatitis [Recovering/Resolving]
  - Infusion related reaction [Not Recovered/Not Resolved]
  - Contusion [Recovering/Resolving]
  - Platelet count decreased [Unknown]

NARRATIVE: CASE EVENT DATE: 2016
